FAERS Safety Report 17436918 (Version 1)
Quarter: 2020Q1

REPORT INFORMATION
  Report Type: Spontaneous
  Country: US (occurrence: US)
  Receive Date: 20200219
  Receipt Date: 20200219
  Transmission Date: 20200409
  Serious: No
  Sender: FDA-Public Use
  Company Number: US-PFIZER INC-2020072188

PATIENT
  Age: 69 Year
  Sex: Female
  Weight: 72.57 kg

DRUGS (3)
  1. VFEND [Suspect]
     Active Substance: VORICONAZOLE
     Dosage: 400 MG, UNK (INCREASED HER DOSE UP TO 400MG)
  2. VFEND [Suspect]
     Active Substance: VORICONAZOLE
     Indication: ASPERGILLUS INFECTION
     Dosage: 200 MG, 2X/DAY
     Dates: start: 201812
  3. VFEND [Suspect]
     Active Substance: VORICONAZOLE
     Dosage: 300 MG, UNK

REACTIONS (6)
  - Drug level below therapeutic [Unknown]
  - Cough [Unknown]
  - Erythema [Unknown]
  - Sensitive skin [Unknown]
  - Paraesthesia [Unknown]
  - Lung disorder [Unknown]

NARRATIVE: CASE EVENT DATE: 201812
